FAERS Safety Report 12440221 (Version 1)
Quarter: 2016Q2

REPORT INFORMATION
  Report Type: Spontaneous
  Country: US (occurrence: US)
  Receive Date: 20160606
  Receipt Date: 20160606
  Transmission Date: 20160815
  Serious: No
  Sender: FDA-Public Use
  Company Number: US-AMGEN-USASP2015129287

PATIENT
  Sex: Female

DRUGS (1)
  1. PROCRIT [Suspect]
     Active Substance: ERYTHROPOIETIN
     Indication: PRODUCT USED FOR UNKNOWN INDICATION
     Dosage: 80000 UNIT, QWK
     Route: 058
     Dates: start: 201511

REACTIONS (3)
  - Drug dose omission [Recovered/Resolved]
  - Pruritus [Not Recovered/Not Resolved]
  - Product preparation error [Unknown]

NARRATIVE: CASE EVENT DATE: 201511
